FAERS Safety Report 9076032 (Version 1)
Quarter: 2013Q1

REPORT INFORMATION
  Report Type: Report from Study
  Country: US (occurrence: US)
  Receive Date: 20130129
  Receipt Date: 20130129
  Transmission Date: 20140127
  Serious: No
  Sender: FDA-Public Use
  Company Number: US-ABBOTT-12P-163-0935960-00

PATIENT
  Age: 44 Year
  Sex: Male

DRUGS (5)
  1. HUMIRA 40 MG/0.8 ML PEN [Suspect]
     Indication: PSORIASIS
     Dates: start: 20120417, end: 20120417
  2. HUMIRA 40 MG/0.8 ML PEN [Suspect]
     Dates: start: 20120424, end: 20120424
  3. HUMIRA 40 MG/0.8 ML PEN [Suspect]
     Dates: start: 20120508
  4. NEXIUM [Concomitant]
     Indication: DYSPEPSIA
     Dosage: 40MG EVERY DAY
  5. LOSARTAN POTASSIUM [Concomitant]
     Indication: HYPERTENSION
     Dosage: 100MG EVERY DAY

REACTIONS (4)
  - Skin fissures [Not Recovered/Not Resolved]
  - Skin exfoliation [Not Recovered/Not Resolved]
  - Drug ineffective [Not Recovered/Not Resolved]
  - Psoriasis [Not Recovered/Not Resolved]
